FAERS Safety Report 8746316 (Version 2)
Quarter: 2012Q4

REPORT INFORMATION
  Report Type: 
  Country: US (occurrence: US)
  Receive Date: 20120827
  Receipt Date: 20120906
  Transmission Date: 20130627
  Serious: Yes (Life-Threatening, Hospitalization)
  Sender: FDA-Public Use
  Company Number: US-GE HEALTHCARE MEDICAL DIAGNOSTICS-MYVW-PR-1208S-0032

PATIENT
  Age: 80 Year
  Sex: Female

DRUGS (5)
  1. MYOVIEW [Suspect]
     Indication: CHEST PAIN
     Route: 042
     Dates: start: 20120703, end: 20120703
  2. MYOVIEW [Suspect]
     Indication: DYSPNOEA
     Route: 042
     Dates: start: 20120703, end: 20120703
  3. MYOVIEW [Suspect]
     Indication: DIAGNOSTIC PROCEDURE
  4. LEXISCAN [Suspect]
     Indication: PRODUCT USED FOR UNKNOWN INDICATION
     Route: 065
     Dates: start: 20120703, end: 20120703
  5. TECHNETIUM 99M GENERATOR [Concomitant]

REACTIONS (12)
  - Angioedema [Recovered/Resolved]
  - Respiratory arrest [Recovered/Resolved]
  - Loss of consciousness [Recovered/Resolved]
  - Bradycardia [Recovered/Resolved]
  - Micturition urgency [Recovered/Resolved]
  - Lip swelling [Recovered/Resolved]
  - Swollen tongue [Recovered/Resolved]
  - Pharyngeal oedema [Recovered/Resolved]
  - Burning sensation [Recovered/Resolved]
  - Hypoxia [Recovered/Resolved]
  - Tryptase [Unknown]
  - Blood pressure decreased [Recovered/Resolved]
